FAERS Safety Report 10655120 (Version 1)
Quarter: 2014Q4

REPORT INFORMATION
  Report Type: Spontaneous
  Country: US (occurrence: US)
  Receive Date: 20141216
  Receipt Date: 20141216
  Transmission Date: 20150529
  Serious: Yes (Other)
  Sender: FDA-Public Use
  Company Number: US-SA-2014SA171998

PATIENT
  Age: 62 Year
  Sex: Female

DRUGS (2)
  1. AUBAGIO [Concomitant]
     Active Substance: TERIFLUNOMIDE
     Indication: MULTIPLE SCLEROSIS
     Route: 048
     Dates: start: 20140116
  2. PLAVIX [Suspect]
     Active Substance: CLOPIDOGREL BISULFATE
     Route: 065

REACTIONS (7)
  - Transient ischaemic attack [Unknown]
  - Cerebrovascular accident [Unknown]
  - Myalgia [Unknown]
  - Loss of consciousness [Unknown]
  - Osteonecrosis [Unknown]
  - Diarrhoea [Unknown]
  - Weight bearing difficulty [Unknown]

NARRATIVE: CASE EVENT DATE: 201409
